FAERS Safety Report 4339702-4 (Version None)
Quarter: 2004Q1

REPORT INFORMATION
  Report Type: 
  Country: None (occurrence: None)
  Receive Date: 20040329
  Receipt Date: 20040204
  Transmission Date: 20041129
  Serious: No
  Sender: FDA-Public Use
  Company Number: 04P-163-0249395-00

PATIENT
  Age: 58 Year
  Sex: Female
  Weight: 64.4108 kg

DRUGS (15)
  1. HUMIRA [Suspect]
     Indication: RHEUMATOID ARTHRITIS
     Dosage: 40 MG, 1 IN 2 WK, SUBCUTANEOUS
     Route: 058
     Dates: start: 20031225
  2. COMBIVENT [Concomitant]
  3. VALACYCLOVIR HCL [Concomitant]
  4. METHOTREXATE [Concomitant]
  5. ALLEGRA-D [Concomitant]
  6. CLONAZEPAM [Concomitant]
  7. AMITRIPTYLINE HYDROCHLORIDE [Concomitant]
  8. RALOXIFENE HCL [Concomitant]
  9. FLUTICASONE PROPIONATE [Concomitant]
  10. FOLIC ACID [Concomitant]
  11. ALENDRONATE SODIUM [Concomitant]
  12. OMEPRAZOLE [Concomitant]
  13. FLUOXETINE HCL [Concomitant]
  14. NABUMETONE [Concomitant]
  15. LEVOTHYROXINE SODIUM [Concomitant]

REACTIONS (3)
  - LIP BLISTER [None]
  - PNEUMONIA [None]
  - STOMATITIS [None]
